FAERS Safety Report 5009751-1 (Version None)
Quarter: 2006Q2

REPORT INFORMATION
  Report Type: 
  Country: None (occurrence: None)
  Receive Date: 20060524
  Receipt Date: 20041104
  Transmission Date: 20061013
  Serious: Yes (Disabling)
  Sender: FDA-Public Use
  Company Number: US-ROCHE-385701

PATIENT
  Age: 37 Year
  Sex: Female
  Weight: 81.6 kg

DRUGS (1)
  1. ACCUTANE [Suspect]
     Indication: ACNE
     Route: 048
     Dates: start: 19930615, end: 19940615

REACTIONS (71)
  - ABDOMINAL PAIN [None]
  - ABORTION INDUCED [None]
  - ALCOHOLISM [None]
  - ANHEDONIA [None]
  - ANXIETY [None]
  - AORTIC DISORDER [None]
  - ARTHRALGIA [None]
  - ARTHRITIS [None]
  - BACK INJURY [None]
  - BACK PAIN [None]
  - BLOOD TRIGLYCERIDES INCREASED [None]
  - BRONCHIAL HYPERACTIVITY [None]
  - CHEST PAIN [None]
  - COLITIS [None]
  - COLITIS ULCERATIVE [None]
  - COLLAGEN-VASCULAR DISEASE [None]
  - CONFUSIONAL STATE [None]
  - CONTUSION [None]
  - CROHN'S DISEASE [None]
  - CYSTITIS [None]
  - DEPRESSION [None]
  - DERMATITIS [None]
  - DIPLOPIA [None]
  - DRUG EXPOSURE DURING PREGNANCY [None]
  - EXPOSURE TO CHEMICAL POLLUTION [None]
  - FACE INJURY [None]
  - FALL [None]
  - FATIGUE [None]
  - FEELING ABNORMAL [None]
  - FIBROMYALGIA [None]
  - FLUSHING [None]
  - GASTROINTESTINAL DISORDER [None]
  - GASTROOESOPHAGEAL REFLUX DISEASE [None]
  - GLOMERULONEPHRITIS PROLIFERATIVE [None]
  - HAND FRACTURE [None]
  - HEADACHE [None]
  - INFLAMMATORY BOWEL DISEASE [None]
  - INJURY [None]
  - INTERNAL INJURY [None]
  - INTESTINAL HAEMORRHAGE [None]
  - IRRITABLE BOWEL SYNDROME [None]
  - JOINT SPRAIN [None]
  - LOBAR PNEUMONIA [None]
  - MENTAL IMPAIRMENT [None]
  - MULTI-ORGAN DISORDER [None]
  - MULTIPLE ALLERGIES [None]
  - MUSCLE SPASMS [None]
  - MUSCLE TWITCHING [None]
  - NAUSEA [None]
  - OESOPHAGITIS [None]
  - OSTEOARTHRITIS [None]
  - PERIORBITAL OEDEMA [None]
  - PNEUMONITIS CHEMICAL [None]
  - PREGNANCY TEST POSITIVE [None]
  - PYREXIA [None]
  - RADICULAR PAIN [None]
  - RASH [None]
  - RECTAL HAEMORRHAGE [None]
  - ROSACEA [None]
  - SINUSITIS [None]
  - SWELLING [None]
  - TENDON DISORDER [None]
  - TINNITUS [None]
  - TREMOR [None]
  - URINARY TRACT INFECTION [None]
  - VAGINAL DISCHARGE [None]
  - VAGINAL LACERATION [None]
  - VAGINAL PAIN [None]
  - VOMITING [None]
  - WEIGHT INCREASED [None]
  - WOUND SECRETION [None]
